FAERS Safety Report 16217193 (Version 1)
Quarter: 2019Q2

REPORT INFORMATION
  Report Type: Spontaneous
  Country: DE (occurrence: DE)
  Receive Date: 20190419
  Receipt Date: 20190419
  Transmission Date: 20190711
  Serious: Yes (Hospitalization)
  Sender: FDA-Public Use
  Company Number: DE-GLAXOSMITHKLINE-DE2019057277

PATIENT
  Age: 60 Year
  Sex: Female
  Weight: 77 kg

DRUGS (2)
  1. PRIDINOL MESILATE [Concomitant]
     Active Substance: PRIDINOL MESILATE
     Indication: MUSCLE SPASMS
     Dosage: 3 MG, QD AT NIGHT
     Route: 048
     Dates: start: 20190305
  2. DICLAC [Suspect]
     Active Substance: DICLOFENAC
     Indication: BACK PAIN
     Dosage: 1 DF, Q12H
     Route: 048
     Dates: start: 20190305, end: 20190306

REACTIONS (4)
  - Drug hypersensitivity [Recovered/Resolved]
  - Swollen tongue [Recovered/Resolved]
  - Dyspnoea [Recovered/Resolved]
  - Pharyngeal swelling [Recovered/Resolved]

NARRATIVE: CASE EVENT DATE: 201903
